FAERS Safety Report 5968989-7 (Version None)
Quarter: 2008Q4

REPORT INFORMATION
  Report Type: 
  Country: None (occurrence: None)
  Receive Date: 20081125
  Receipt Date: 20081125
  Transmission Date: 20090506
  Serious: Yes (Life-Threatening)
  Sender: FDA-Public Use
  Company Number: None

PATIENT
  Sex: Female
  Weight: 58.0604 kg

DRUGS (1)
  1. LAMOTRIGINE [Suspect]
     Indication: DEPRESSION
     Dosage: 25MG TWICE QD P.O. MID SEPTEMBER TO OCT 24, 08
     Route: 048
     Dates: start: 20080901, end: 20081024

REACTIONS (5)
  - DEPRESSION [None]
  - IMPAIRED WORK ABILITY [None]
  - PERSONALITY CHANGE [None]
  - SUICIDAL IDEATION [None]
  - THERAPEUTIC RESPONSE UNEXPECTED WITH DRUG SUBSTITUTION [None]
